FAERS Safety Report 5716120-5 (Version None)
Quarter: 2008Q2

REPORT INFORMATION
  Report Type: 
  Country: None (occurrence: None)
  Receive Date: 20080423
  Receipt Date: 20080423
  Transmission Date: 20081010
  Serious: Yes (Hospitalization)
  Sender: FDA-Public Use
  Company Number: None

PATIENT
  Age: 66 Year
  Sex: Female
  Weight: 64 kg

DRUGS (13)
  1. IRINOTECAN HCL [Suspect]
     Indication: COLORECTAL CANCER METASTATIC
     Dosage: 180 MG/M**2 Q2W IV  (DURATION: 1 HOUR 30 MINS)
     Route: 042
     Dates: start: 20080401, end: 20080401
  2. PLACEBO [Suspect]
     Indication: COLORECTAL CANCER METASTATIC
     Dosage: 4 MG/KG Q2W IV
     Route: 042
     Dates: start: 20080401, end: 20080401
  3. FLUOROURACIL [Suspect]
     Indication: COLORECTAL CANCER METASTATIC
     Dosage: Q2W IV  (DURATION: 1 DAY 22 HOURS)
     Route: 042
     Dates: start: 20080401
  4. LEUCOVORIN CALCIUM [Suspect]
     Indication: COLORECTAL CANCER METASTATIC
     Dosage: 400 MG/M**2 Q2W IV
     Route: 042
     Dates: start: 20080401, end: 20080401
  5. RAMIPRIL [Concomitant]
  6. OBSIDAN [Concomitant]
  7. DOLORMIN [Concomitant]
  8. IBUPROFEN TABLETS [Concomitant]
  9. VOLTAREN [Concomitant]
  10. TRAMADOL HCL [Concomitant]
  11. METAMIZOL [Concomitant]
  12. PARACETAMOL [Concomitant]
  13. MIRTEL [Concomitant]

REACTIONS (5)
  - ARTERIAL DISORDER [None]
  - COAGULOPATHY [None]
  - COMPUTERISED TOMOGRAM ABNORMAL [None]
  - INTESTINAL STENOSIS [None]
  - PERIPHERAL EMBOLISM [None]
